FAERS Safety Report 6679834-9 (Version None)
Quarter: 2010Q2

REPORT INFORMATION
  Report Type: 
  Country: None (occurrence: None)
  Receive Date: 20100413
  Receipt Date: 20100408
  Transmission Date: 20101027
  Serious: Yes (Other)
  Sender: FDA-Public Use
  Company Number: US-JNJFOC-20100402177

PATIENT
  Age: 91 Year
  Sex: Female
  Weight: 72.58 kg

DRUGS (9)
  1. EXTRA STRENGTH TYLENOL PM RAPID RELEASE [Suspect]
     Indication: INSOMNIA
     Route: 048
  2. ASPIRIN [Concomitant]
  3. EVISTA [Concomitant]
     Indication: OSTEOPOROSIS
  4. QUINAPRIL [Concomitant]
     Indication: HYPERTENSION
  5. TRIAMTERENE AND HYDROCHLOROTHIAZIDE [Concomitant]
     Indication: DIURETIC THERAPY
  6. AMLODIPINE [Concomitant]
     Indication: HYPERTENSION
  7. SIMVASTATIN [Concomitant]
     Indication: BLOOD CHOLESTEROL INCREASED
  8. CALCIUM WITH VITAMIN D [Concomitant]
     Indication: NUTRITIONAL SUPPORT
  9. MULTI-VITAMINS [Concomitant]
     Indication: NUTRITIONAL SUPPORT

REACTIONS (1)
  - OPERATIVE HAEMORRHAGE [None]
